FAERS Safety Report 4705912-7 (Version None)
Quarter: 2005Q2

REPORT INFORMATION
  Report Type: 
  Country: None (occurrence: None)
  Receive Date: 20050629
  Receipt Date: 20050617
  Transmission Date: 20051028
  Serious: Yes (Other)
  Sender: FDA-Public Use
  Company Number: 2005065519

PATIENT
  Age: 41 Year
  Sex: Female
  Weight: 99.3377 kg

DRUGS (2)
  1. DEPO-PROVERA [Suspect]
     Indication: CONTRACEPTION
     Dosage: SEE IMAGE
     Route: 030
     Dates: start: 20010418, end: 20010418
  2. DEPO-PROVERA [Suspect]
     Indication: CONTRACEPTION
     Dosage: SEE IMAGE
     Route: 030
     Dates: start: 20050614, end: 20050614

REACTIONS (6)
  - AMENORRHOEA [None]
  - DIABETES MELLITUS [None]
  - HAEMORRHAGE [None]
  - METRORRHAGIA [None]
  - PROTEIN URINE PRESENT [None]
  - RENAL DISORDER [None]
